FAERS Safety Report 9325244 (Version 6)
Quarter: 2013Q4

REPORT INFORMATION
  Report Type: Report from Study
  Country: CA (occurrence: CA)
  Receive Date: 20130604
  Receipt Date: 20131121
  Transmission Date: 20140711
  Serious: Yes (Other)
  Sender: FDA-Public Use
  Company Number: CA-ROCHE-1214600

PATIENT
  Sex: Female
  Weight: 53 kg

DRUGS (6)
  1. AVASTIN [Suspect]
     Indication: OVARIAN CANCER
     Route: 042
     Dates: start: 20130328, end: 20130328
  2. TYLENOL [Concomitant]
     Route: 048
     Dates: start: 20130328
  3. BENADRYL (CANADA) [Concomitant]
     Route: 048
     Dates: start: 20130328
  4. FRAGMIN [Concomitant]
     Route: 065
  5. FOSAVANCE [Concomitant]
     Route: 065
  6. DILAUDID [Concomitant]
     Route: 065

REACTIONS (5)
  - Enterocutaneous fistula [Recovering/Resolving]
  - Ascites [Not Recovered/Not Resolved]
  - Umbilical discharge [Not Recovered/Not Resolved]
  - Abdominal pain [Recovering/Resolving]
  - Asthenia [Unknown]
